FAERS Safety Report 4710719-0 (Version None)
Quarter: 2005Q3

REPORT INFORMATION
  Report Type: 
  Country: None (occurrence: None)
  Receive Date: 20050711
  Receipt Date: 20050628
  Transmission Date: 20060218
  Serious: Yes (Other)
  Sender: FDA-Public Use
  Company Number: PHBS2005BR09352

PATIENT
  Age: 23 Year
  Sex: Female
  Weight: 66 kg

DRUGS (1)
  1. PARLODEL [Suspect]
     Indication: BLOOD PROLACTIN INCREASED
     Dosage: 2.5 MG, QD
     Route: 048
     Dates: start: 20050519, end: 20050519

REACTIONS (11)
  - APHASIA [None]
  - DIZZINESS [None]
  - FACE INJURY [None]
  - FALL [None]
  - PAIN [None]
  - RETCHING [None]
  - SCAR [None]
  - SYNCOPE [None]
  - TOOTH INJURY [None]
  - TOOTHACHE [None]
  - VERTIGO [None]
